FAERS Safety Report 21501201 (Version 5)
Quarter: 2024Q2

REPORT INFORMATION
  Report Type: Spontaneous
  Country: US (occurrence: US)
  Receive Date: 20221025
  Receipt Date: 20240507
  Transmission Date: 20240715
  Serious: Yes (Hospitalization, Other)
  Sender: FDA-Public Use
  Company Number: US-BRISTOL-MYERS SQUIBB COMPANY-2022-125787

PATIENT
  Age: 78 Year
  Sex: Male

DRUGS (1)
  1. IDHIFA [Suspect]
     Active Substance: ENASIDENIB MESYLATE
     Indication: Acute myeloid leukaemia
     Dosage: DAILY
     Route: 048
     Dates: start: 20210216

REACTIONS (11)
  - Malaise [Unknown]
  - Dizziness [Unknown]
  - Renal disorder [Unknown]
  - Fatigue [Unknown]
  - Headache [Unknown]
  - Gait disturbance [Unknown]
  - Depressed mood [Unknown]
  - Decreased appetite [Unknown]
  - Drug ineffective [Unknown]
  - Illness [Unknown]
  - Acute myeloid leukaemia [Unknown]

NARRATIVE: CASE EVENT DATE: 20221021
